FAERS Safety Report 18220925 (Version 1)
Quarter: 2020Q3

REPORT INFORMATION
  Report Type: Report from Study
  Country: None (occurrence: CL)
  Receive Date: 20200902
  Receipt Date: 20200902
  Transmission Date: 20201103
  Serious: Yes (Other)
  Sender: FDA-Public Use
  Company Number: CL-ABBVIE-20K-034-3546283-00

PATIENT
  Age: 61 Year
  Sex: Female

DRUGS (1)
  1. HUMIRA [Suspect]
     Active Substance: ADALIMUMAB
     Indication: RHEUMATOID ARTHRITIS
     Route: 058
     Dates: start: 20180712

REACTIONS (7)
  - Tinnitus [Unknown]
  - Syncope [Unknown]
  - Unevaluable event [Unknown]
  - Hyperglycaemia [Recovered/Resolved]
  - Hypertension [Recovering/Resolving]
  - Nausea [Unknown]
  - Headache [Unknown]

NARRATIVE: CASE EVENT DATE: 202008
